FAERS Safety Report 25584843 (Version 2)
Quarter: 2025Q3

REPORT INFORMATION
  Report Type: Spontaneous
  Country: CN (occurrence: CN)
  Receive Date: 20250721
  Receipt Date: 20250822
  Transmission Date: 20251021
  Serious: Yes (Hospitalization, Other)
  Sender: NOVARTIS
  Company Number: CN-002147023-NVSC2025CN114335

PATIENT
  Age: 50 Year
  Sex: Female

DRUGS (1)
  1. KESIMPTA [Suspect]
     Active Substance: OFATUMUMAB
     Indication: Multiple sclerosis
     Route: 065
     Dates: start: 202503, end: 202506

REACTIONS (11)
  - Visual acuity reduced [Recovering/Resolving]
  - Multiple sclerosis [Unknown]
  - Disease recurrence [Not Recovered/Not Resolved]
  - Vision blurred [Recovering/Resolving]
  - Headache [Unknown]
  - Body temperature increased [Recovered/Resolved]
  - Respiratory tract infection [Unknown]
  - Asthenia [Unknown]
  - Somnolence [Unknown]
  - Temperature intolerance [Unknown]
  - Toxoplasma serology positive [Unknown]

NARRATIVE: CASE EVENT DATE: 20250701
